FAERS Safety Report 8252068-2 (Version None)
Quarter: 2012Q2

REPORT INFORMATION
  Report Type: 
  Country: None (occurrence: None)
  Receive Date: 20120402
  Receipt Date: 20110323
  Transmission Date: 20120825
  Serious: No
  Sender: FDA-Public Use
  Company Number: US-ABBOTT-08P-163-0789012-00

PATIENT
  Sex: Male
  Weight: 84 kg

DRUGS (4)
  1. TESTOSTERONE [Suspect]
     Dosage: DAILY DOSE: 5 GRAM(S) VIA PUMP
     Route: 062
     Dates: start: 20080901
  2. TESTOSTERONE [Concomitant]
     Dosage: DAILY DOSE:  UNKNOWN
     Route: 062
  3. BENAZEPRIL [Concomitant]
     Indication: HYPERTENSION
     Dosage: DAILY DOSE: 20 MILLIGRAM(S)
     Route: 048
  4. TESTOSTERONE [Suspect]
     Indication: BLOOD TESTOSTERONE DECREASED
     Dosage: DAILY DOSE: 5 GRAM(S) VIA PUMP
     Route: 062
     Dates: start: 20010101, end: 20080801

REACTIONS (2)
  - BLOOD URIC ACID INCREASED [None]
  - BLOOD TESTOSTERONE DECREASED [None]
